FAERS Safety Report 5667321-6 (Version None)
Quarter: 2008Q1

REPORT INFORMATION
  Report Type: 
  Country: None (occurrence: None)
  Receive Date: 20080315
  Receipt Date: 20080122
  Transmission Date: 20080703
  Serious: No
  Sender: FDA-Public Use
  Company Number: US-ABBOTT-08P-163-0434356-00

PATIENT
  Sex: Female
  Weight: 90.8 kg

DRUGS (4)
  1. HUMIRA [Suspect]
     Indication: CROHN'S DISEASE
     Route: 058
     Dates: start: 20070801, end: 20080104
  2. ALLERGY SHOT [Concomitant]
     Indication: HYPERSENSITIVITY
     Route: 050
     Dates: start: 20060101
  3. BUDESONIDE [Concomitant]
     Indication: ASTHMA
     Dates: start: 20060101
  4. SALBUTAMOL SULFATE [Concomitant]
     Indication: ASTHMA
     Dates: start: 20060101

REACTIONS (2)
  - ASTHMA [None]
  - UPPER RESPIRATORY TRACT INFECTION [None]
